FAERS Safety Report 5051708-9 (Version None)
Quarter: 2006Q3

REPORT INFORMATION
  Report Type: 
  Country: None (occurrence: None)
  Receive Date: 20060712
  Receipt Date: 20060712
  Transmission Date: 20061208
  Serious: No
  Sender: FDA-Public Use
  Company Number: None

PATIENT
  Age: 62 Year
  Sex: Male

DRUGS (1)
  1. XIGRIS [Suspect]
     Indication: SEPSIS
     Dosage: 24 MCG/KG/HR
     Dates: start: 20060415, end: 20060418

REACTIONS (2)
  - COAGULOPATHY [None]
  - HAEMORRHAGE [None]
